FAERS Safety Report 23289836 (Version 1)
Quarter: 2023Q4

REPORT INFORMATION
  Report Type: Spontaneous
  Country: US (occurrence: US)
  Receive Date: 20231212
  Receipt Date: 20231212
  Transmission Date: 20240110
  Serious: No
  Sender: FDA-Public Use
  Company Number: US-PFIZER INC-202300441407

PATIENT
  Sex: Male

DRUGS (2)
  1. TALAZOPARIB [Suspect]
     Active Substance: TALAZOPARIB
     Indication: Prostate cancer metastatic
     Dosage: UNK
  2. ENZALUTAMIDE [Concomitant]
     Active Substance: ENZALUTAMIDE

REACTIONS (1)
  - Abdominal pain [Recovered/Resolved]
